FAERS Safety Report 20551180 (Version 4)
Quarter: 2022Q3

REPORT INFORMATION
  Report Type: Other
  Country: CA (occurrence: CA)
  Receive Date: 20220304
  Receipt Date: 20220713
  Transmission Date: 20221026
  Serious: Yes (Hospitalization, Other)
  Sender: FDA-Public Use
  Company Number: CA-TOLMAR, INC.-22CA032724

PATIENT
  Age: 71 Year
  Sex: Male

DRUGS (3)
  1. ELIGARD [Suspect]
     Active Substance: LEUPROLIDE ACETATE
     Indication: Prostate cancer
     Dosage: 45 MILLIGRAM, Q 6 MONTH
     Route: 058
     Dates: start: 20200327
  2. ELIGARD [Suspect]
     Active Substance: LEUPROLIDE ACETATE
     Dosage: 45 MILLIGRAM, Q 6 MONTH
     Route: 058
     Dates: start: 20210814
  3. ELIGARD [Suspect]
     Active Substance: LEUPROLIDE ACETATE
     Dosage: 45 MILLIGRAM, Q 6 MONTH
     Route: 058
     Dates: start: 20220129

REACTIONS (9)
  - Cellulitis [Unknown]
  - Intracranial mass [Unknown]
  - Pneumonia [Unknown]
  - COVID-19 [Unknown]
  - Weight increased [Unknown]
  - Confusional state [Unknown]
  - Eye swelling [Unknown]
  - Balance disorder [Unknown]
  - Injection site mass [Unknown]

NARRATIVE: CASE EVENT DATE: 20220401
